FAERS Safety Report 13946704 (Version 1)
Quarter: 2017Q3

REPORT INFORMATION
  Report Type: Not Available
  Country: US (occurrence: US)
  Receive Date: 20170907
  Receipt Date: 20170907
  Transmission Date: 20171128
  Serious: Yes (Other)
  Sender: FDA-Public Use
  Company Number: US-ANIPHARMA-2017-US-010235

PATIENT
  Age: 28 Year
  Sex: Female

DRUGS (6)
  1. LEVOFLOXACIN. [Suspect]
     Active Substance: LEVOFLOXACIN
  2. CEFTRIAXONE. [Suspect]
     Active Substance: CEFTRIAXONE
  3. DOXYCYCLINE. [Suspect]
     Active Substance: DOXYCYCLINE
  4. PREDNISONE. [Concomitant]
     Active Substance: PREDNISONE
  5. MEREPENEM [Suspect]
     Active Substance: MEROPENEM
  6. VANCOMYCIN HYDROCHLORIDE (NON-SPECIFIC) [Suspect]
     Active Substance: VANCOMYCIN HYDROCHLORIDE

REACTIONS (2)
  - Histiocytosis haematophagic [Unknown]
  - Drug reaction with eosinophilia and systemic symptoms [Unknown]
